FAERS Safety Report 21320549 (Version 1)
Quarter: 2022Q3

REPORT INFORMATION
  Report Type: Spontaneous
  Country: US (occurrence: US)
  Receive Date: 20220912
  Receipt Date: 20220912
  Transmission Date: 20221027
  Serious: Yes (Hospitalization)
  Sender: FDA-Public Use
  Company Number: US-VALIDUS PHARMACEUTICALS LLC-US-VDP-2022-015709

PATIENT
  Age: 80 Year
  Sex: Male
  Weight: 79.38 kg

DRUGS (4)
  1. LASIX [Suspect]
     Active Substance: FUROSEMIDE
     Indication: Joint swelling
     Dosage: 3 DOSAGE FORM
     Route: 065
     Dates: start: 20220819
  2. LASIX [Suspect]
     Active Substance: FUROSEMIDE
     Indication: Peripheral swelling
  3. LASIX [Suspect]
     Active Substance: FUROSEMIDE
     Indication: Abdominal distension
  4. PANZYGA [Suspect]
     Active Substance: HUMAN IMMUNOGLOBULIN G
     Indication: Chronic inflammatory demyelinating polyradiculoneuropathy
     Dosage: 160 GRAM INFUSION, Q3WK
     Route: 065
     Dates: start: 202204, end: 20220824

REACTIONS (8)
  - Hospitalisation [Not Recovered/Not Resolved]
  - Hypotension [Unknown]
  - Heart rate decreased [Unknown]
  - Fluid retention [Unknown]
  - Weight increased [Unknown]
  - Drug ineffective [Unknown]
  - Drug ineffective [Unknown]
  - Product quality issue [Unknown]

NARRATIVE: CASE EVENT DATE: 20220801
